FAERS Safety Report 11169454 (Version 4)
Quarter: 2016Q3

REPORT INFORMATION
  Report Type: Report from Study
  Country: US (occurrence: US)
  Receive Date: 20150605
  Receipt Date: 20160720
  Transmission Date: 20161109
  Serious: Yes (Hospitalization, Other)
  Sender: FDA-Public Use
  Company Number: US-ACTELION-A-NJ2015-118857

PATIENT
  Age: 51 Year
  Sex: Female

DRUGS (4)
  1. RIOCIGUAT [Concomitant]
     Active Substance: RIOCIGUAT
  2. OPSUMIT [Suspect]
     Active Substance: MACITENTAN
     Indication: PULMONARY HYPERTENSION
     Dosage: 10 MG, QD
     Route: 048
     Dates: start: 20140624
  3. REVATIO [Concomitant]
     Active Substance: SILDENAFIL CITRATE
  4. WARFARIN [Concomitant]
     Active Substance: WARFARIN

REACTIONS (12)
  - Metapneumovirus infection [Unknown]
  - Headache [Unknown]
  - Gastric disorder [Unknown]
  - Weight decreased [Unknown]
  - Large intestine polyp [Unknown]
  - Syncope [Unknown]
  - Constipation [Unknown]
  - Dyspnoea [Unknown]
  - Intestinal obstruction [Unknown]
  - Thrombosis [Unknown]
  - Pneumonia viral [Unknown]
  - Large intestinal polypectomy [Unknown]

NARRATIVE: CASE EVENT DATE: 201605
